FAERS Safety Report 13527781 (Version 1)
Quarter: 2017Q2

REPORT INFORMATION
  Report Type: Spontaneous
  Country: RO (occurrence: RO)
  Receive Date: 20170509
  Receipt Date: 20170509
  Transmission Date: 20170830
  Serious: Yes (Other)
  Sender: FDA-Public Use
  Company Number: RO-JNJFOC-20170505482

PATIENT
  Sex: Female

DRUGS (1)
  1. RISPERDAL CONSTA [Suspect]
     Active Substance: RISPERIDONE
     Indication: PRODUCT USED FOR UNKNOWN INDICATION
     Dosage: FOR MORE THAN 5 YEARS
     Route: 065

REACTIONS (2)
  - Breast abscess [Unknown]
  - Blood prolactin increased [Unknown]
